FAERS Safety Report 18050366 (Version 1)
Quarter: 2020Q3

REPORT INFORMATION
  Report Type: Spontaneous
  Country: CA (occurrence: CA)
  Receive Date: 20200721
  Receipt Date: 20200721
  Transmission Date: 20201103
  Serious: Yes (Life-Threatening, Other)
  Sender: FDA-Public Use
  Company Number: CA-TEVA-2020-CA-1801787

PATIENT
  Age: 10 Year
  Sex: Male
  Weight: 35 kg

DRUGS (4)
  1. ACETAMINOPHEN. [Concomitant]
     Active Substance: ACETAMINOPHEN
  2. CEFOTAXIME [Suspect]
     Active Substance: CEFOTAXIME SODIUM
     Route: 042
  3. AMOXICILLIN. [Suspect]
     Active Substance: AMOXICILLIN
     Indication: PNEUMONIA
     Route: 048
  4. IBUPROFEN. [Suspect]
     Active Substance: IBUPROFEN
     Route: 048

REACTIONS (11)
  - Anaphylactic shock [Recovered/Resolved]
  - Rash [Recovered/Resolved]
  - Mycoplasma test positive [Recovered/Resolved]
  - Pyrexia [Recovered/Resolved]
  - Urticaria [Recovered/Resolved]
  - Diarrhoea [Recovered/Resolved]
  - Pruritus [Recovered/Resolved]
  - Hospitalisation [Recovered/Resolved]
  - Chills [Recovered/Resolved]
  - Polymerase chain reaction [Recovered/Resolved]
  - Oedema mucosal [Recovered/Resolved]
